FAERS Safety Report 18029950 (Version 1)
Quarter: 2020Q3

REPORT INFORMATION
  Report Type: Spontaneous
  Country: US (occurrence: US)
  Receive Date: 20200715
  Receipt Date: 20200715
  Transmission Date: 20201103
  Serious: Yes (Other)
  Sender: FDA-Public Use
  Company Number: None

PATIENT
  Age: 7 Year
  Sex: Male
  Weight: 22.05 kg

DRUGS (2)
  1. ZYRTEC [Concomitant]
     Active Substance: CETIRIZINE HYDROCHLORIDE
  2. SCENT THEORY ? KEEP IT CLEAN ? PURE CLEAN ANTI?BACTERIAL HAND SANITIZER [Suspect]
     Active Substance: ALCOHOL
     Indication: INFECTION PROPHYLAXIS
     Dosage: ?          OTHER STRENGTH:16.9 FL OZ/500ML;QUANTITY:16.9 OUNCE(S);?
     Route: 061

REACTIONS (4)
  - Diarrhoea [None]
  - Headache [None]
  - Recalled product administered [None]
  - Vomiting [None]

NARRATIVE: CASE EVENT DATE: 20200712
